FAERS Safety Report 4282593-0 (Version None)
Quarter: 2004Q1

REPORT INFORMATION
  Report Type: 
  Country: None (occurrence: None)
  Receive Date: 20040130
  Receipt Date: 20020607
  Transmission Date: 20041129
  Serious: No
  Sender: FDA-Public Use
  Company Number: US-BRISTOL-MYERS SQUIBB COMPANY-11899408

PATIENT
  Age: 37 Year
  Sex: Female

DRUGS (1)
  1. SERZONE [Suspect]
     Route: 048
     Dates: start: 19970101, end: 19980101

REACTIONS (6)
  - CHROMATURIA [None]
  - CONSTIPATION [None]
  - FATIGUE [None]
  - PAIN [None]
  - RASH [None]
  - WEIGHT DECREASED [None]
